FAERS Safety Report 7515243-8 (Version None)
Quarter: 2011Q2

REPORT INFORMATION
  Report Type: 
  Country: None (occurrence: None)
  Receive Date: 20110601
  Receipt Date: 20100602
  Transmission Date: 20111010
  Serious: Yes (Other)
  Sender: FDA-Public Use
  Company Number: US-PFIZER INC-2010069113

PATIENT
  Sex: Female
  Weight: 57.596 kg

DRUGS (5)
  1. ATORVASTATIN CALCIUM [Concomitant]
     Indication: BLOOD CHOLESTEROL INCREASED
     Dosage: UNK
  2. ESOMEPRAZOLE MAGNESIUM [Concomitant]
     Indication: GASTROOESOPHAGEAL REFLUX DISEASE
     Dosage: UNK
  3. HUMIRA [Suspect]
     Dosage: 40 MG, 1 IN 2 WEEKS
     Route: 058
     Dates: start: 20091001
  4. HUMIRA [Suspect]
     Indication: PSORIASIS
     Dosage: 40 MG, WEEKLY
     Route: 058
     Dates: start: 20090701, end: 20091001
  5. CHANTIX [Suspect]
     Indication: SMOKING CESSATION THERAPY
     Dosage: UNK

REACTIONS (5)
  - DRUG INEFFECTIVE [None]
  - INJECTION SITE PAIN [None]
  - PSORIASIS [None]
  - NAUSEA [None]
  - PRURITUS [None]
